FAERS Safety Report 7864678-2 (Version None)
Quarter: 2011Q4

REPORT INFORMATION
  Report Type: 
  Country: None (occurrence: None)
  Receive Date: 20111028
  Receipt Date: 20111026
  Transmission Date: 20120403
  Serious: Yes (Hospitalization, Other)
  Sender: FDA-Public Use
  Company Number: US-PFIZER INC-2011261258

PATIENT
  Sex: Male

DRUGS (1)
  1. CHANTIX [Suspect]
     Dosage: UNK
     Dates: start: 20070901

REACTIONS (9)
  - MEMORY IMPAIRMENT [None]
  - ANXIETY [None]
  - TACHYPHRENIA [None]
  - DISTURBANCE IN ATTENTION [None]
  - NAUSEA [None]
  - SUICIDAL IDEATION [None]
  - DEPRESSION [None]
  - ABNORMAL BEHAVIOUR [None]
  - DIZZINESS [None]
